FAERS Safety Report 4317745-4 (Version None)
Quarter: 2004Q1

REPORT INFORMATION
  Report Type: 
  Country: None (occurrence: None)
  Receive Date: 20040315
  Receipt Date: 20040225
  Transmission Date: 20041129
  Serious: Yes (Life-Threatening)
  Sender: FDA-Public Use
  Company Number: PHBS2004JP02667

PATIENT
  Age: 54 Year
  Sex: Male

DRUGS (4)
  1. SIMULECT [Suspect]
     Indication: RENAL TRANSPLANT
     Dates: start: 20030305
  2. TACROLIMUS [Suspect]
     Indication: RENAL TRANSPLANT
     Dates: start: 20030305
  3. STEROIDS NOS [Suspect]
     Indication: RENAL TRANSPLANT
     Dates: start: 20030305
  4. MYCOPHENOLATE MOFETIL [Concomitant]
     Indication: RENAL TRANSPLANT
     Dates: start: 20030305

REACTIONS (7)
  - ABDOMINAL PAIN [None]
  - ACIDOSIS [None]
  - BLOOD AMYLASE INCREASED [None]
  - ENTERECTOMY [None]
  - GASTROINTESTINAL NECROSIS [None]
  - INTESTINAL ISCHAEMIA [None]
  - PANCREATITIS ACUTE [None]
